FAERS Safety Report 23938002 (Version 2)
Quarter: 2024Q2

REPORT INFORMATION
  Report Type: Spontaneous
  Country: US (occurrence: None)
  Receive Date: 20240604
  Receipt Date: 20240618
  Transmission Date: 20240716
  Serious: No
  Sender: FDA-Public Use
  Company Number: 2024A114495

PATIENT
  Sex: Female

DRUGS (1)
  1. FASENRA [Suspect]
     Active Substance: BENRALIZUMAB
     Indication: Asthma
     Route: 058
     Dates: start: 202404

REACTIONS (5)
  - Cough [Recovering/Resolving]
  - Dysphonia [Recovering/Resolving]
  - Asthma [Unknown]
  - Lacrimation increased [Recovered/Resolved]
  - Seasonal allergy [Unknown]

NARRATIVE: CASE EVENT DATE: 20240401
